FAERS Safety Report 9627937 (Version 1)
Quarter: 2013Q4

REPORT INFORMATION
  Report Type: Spontaneous
  Country: AU (occurrence: AU)
  Receive Date: 20131016
  Receipt Date: 20131016
  Transmission Date: 20140711
  Serious: Yes (Hospitalization)
  Sender: FDA-Public Use
  Company Number: AU-BAXTER-2013BAX039217

PATIENT
  Age: 69 Year
  Sex: Female

DRUGS (2)
  1. KIOVIG NORMAL IMMUNOGLOBULIN (HUMAN) 20G/200ML FOR INTRAVENOUS USE INJ [Suspect]
     Indication: PRODUCT USED FOR UNKNOWN INDICATION
     Route: 042
     Dates: start: 20131002, end: 20131002
  2. KIOVIG NORMAL IMMUNOGLOBULIN (HUMAN) 5G/50ML FOR INTRAVENOUS USE INJEC [Suspect]
     Indication: PRODUCT USED FOR UNKNOWN INDICATION
     Route: 042
     Dates: start: 20131002, end: 20131002

REACTIONS (2)
  - Pruritus generalised [Recovered/Resolved]
  - Muscle twitching [Recovered/Resolved]
